FAERS Safety Report 21465442 (Version 1)
Quarter: 2022Q4

REPORT INFORMATION
  Report Type: Spontaneous
  Country: IT (occurrence: IT)
  Receive Date: 20221017
  Receipt Date: 20221017
  Transmission Date: 20230113
  Serious: Yes (Life-Threatening, Disabling)
  Sender: FDA-Public Use
  Company Number: None

PATIENT
  Age: 69 Year
  Sex: Female
  Weight: 45 kg

DRUGS (4)
  1. INFLIXIMAB [Suspect]
     Active Substance: INFLIXIMAB
     Indication: Colitis ulcerative
     Dosage: FLIXABI 5 MG/KG
     Route: 042
     Dates: start: 20220805, end: 20220822
  2. GOSURAN [Concomitant]
     Indication: Breast cancer
     Dosage: LETROZOLO 2.5MG/24H
     Route: 048
  3. PREDNISONE [Concomitant]
     Active Substance: PREDNISONE
     Indication: Colitis ulcerative
     Dosage: 5 MILLIGRAM, 4 TABLETS AFTER BREAKFAST AT THE TIME OF THE REACTION
     Route: 048
     Dates: start: 20220501
  4. FUROSEMIDE [Concomitant]
     Active Substance: FUROSEMIDE
     Indication: Primary biliary cholangitis
     Dosage: FUROSEMIDE 1 CPR 25 MG
     Route: 048

REACTIONS (3)
  - Ischaemic stroke [Recovering/Resolving]
  - Dysarthria [Recovering/Resolving]
  - Hemiplegia [Recovering/Resolving]

NARRATIVE: CASE EVENT DATE: 20220822
